FAERS Safety Report 10944463 (Version 1)
Quarter: 2015Q1

REPORT INFORMATION
  Report Type: Spontaneous
  Country: JP (occurrence: None)
  Receive Date: 20150318
  Receipt Date: 20150318
  Transmission Date: 20150721
  Serious: Yes (Hospitalization)
  Sender: FDA-Public Use
  Company Number: 2015-000499

PATIENT
  Age: 80 Year
  Sex: Female

DRUGS (7)
  1. MYONAL (EPIRIZOLE HYDROCHLORIDE) [Concomitant]
  2. ALUSA (ALDIOXA) [Concomitant]
  3. SHAKUYAKUKANZOTO (HERBAL EXTRACT NOS) [Concomitant]
  4. ACTONEL [Suspect]
     Active Substance: RISEDRONATE SODIUM
     Indication: OSTEOPOROSIS
     Route: 048
     Dates: start: 20130328
  5. BENET(RISEDRONATE SODIUM)TABLET 17.5 MG [Suspect]
     Active Substance: RISEDRONATE SODIUM
     Indication: OSTEOPOROSIS
     Route: 048
     Dates: start: 20080703, end: 20130327
  6. OSTELUC (ETODOLAC) [Concomitant]
  7. MUCOSTA (REBAMIPIDE) [Concomitant]

REACTIONS (2)
  - Atypical femur fracture [None]
  - Pain in extremity [None]

NARRATIVE: CASE EVENT DATE: 20150203
